FAERS Safety Report 12823964 (Version 1)
Quarter: 2016Q4

REPORT INFORMATION
  Report Type: Spontaneous
  Country: US (occurrence: US)
  Receive Date: 20161006
  Receipt Date: 20161006
  Transmission Date: 20170207
  Serious: Yes (Other)
  Sender: FDA-Public Use
  Company Number: None

PATIENT
  Age: 34 Year
  Sex: Female
  Weight: 90 kg

DRUGS (2)
  1. IBUPROFEN. [Concomitant]
     Active Substance: IBUPROFEN
  2. OVIDE [Suspect]
     Active Substance: MALATHION
     Indication: LICE INFESTATION
     Dosage: ?          OTHER ROUTE:HEAD?
     Dates: start: 20161004, end: 20161004

REACTIONS (8)
  - Scab [None]
  - Nasal discomfort [None]
  - Pain [None]
  - Chemical burn of skin [None]
  - Thermal burn [None]
  - Nasal congestion [None]
  - Epistaxis [None]
  - Rhinalgia [None]

NARRATIVE: CASE EVENT DATE: 20161004
